FAERS Safety Report 7137880-5 (Version None)
Quarter: 2010Q4

REPORT INFORMATION
  Report Type: 
  Country: None (occurrence: None)
  Receive Date: 20101206
  Receipt Date: 20101123
  Transmission Date: 20110411
  Serious: Yes (Other)
  Sender: FDA-Public Use
  Company Number: PHHY2010US66456

PATIENT
  Sex: Female
  Weight: 55.329 kg

DRUGS (15)
  1. EXJADE [Suspect]
     Indication: IRON OVERLOAD
     Dosage: 1000 MG, QD
     Route: 048
  2. LIDODERM [Concomitant]
  3. NEURONTIN [Concomitant]
  4. SYNTHROID [Concomitant]
  5. AMBIEN [Concomitant]
  6. CYMBALTA [Concomitant]
  7. LISINOPRIL [Concomitant]
  8. CALCIUM PLUS D [Concomitant]
  9. VITAMIN B6 [Concomitant]
  10. ATIVAN [Concomitant]
  11. FOLIC ACID [Concomitant]
  12. MOBIC [Concomitant]
  13. ZYRTEC [Concomitant]
  14. FLONASE [Concomitant]
  15. BLOOD TRANSFUSION, AUXILIARY PRODUCTS [Concomitant]

REACTIONS (15)
  - ANTINUCLEAR ANTIBODY POSITIVE [None]
  - COLD AGGLUTININS [None]
  - COLD TYPE HAEMOLYTIC ANAEMIA [None]
  - COLITIS [None]
  - HYPOCOMPLEMENTAEMIA [None]
  - HYPOTHYROIDISM [None]
  - HYSTERECTOMY [None]
  - KYPHOSIS [None]
  - MUSCULOSKELETAL DISCOMFORT [None]
  - NEUROPATHY PERIPHERAL [None]
  - OSTEOARTHRITIS [None]
  - OSTEOPOROSIS [None]
  - SPINAL LAMINECTOMY [None]
  - THROMBOCYTOPENIA [None]
  - UNDERDOSE [None]
